FAERS Safety Report 9456347 (Version 1)
Quarter: 2013Q3

REPORT INFORMATION
  Report Type: Spontaneous
  Country: FR (occurrence: FR)
  Receive Date: 20130813
  Receipt Date: 20130813
  Transmission Date: 20140515
  Serious: Yes (Hospitalization)
  Sender: FDA-Public Use
  Company Number: FR-GLAXOSMITHKLINE-B0914288A

PATIENT
  Age: 77 Year
  Sex: Female

DRUGS (5)
  1. DEROXAT [Suspect]
     Indication: ANXIETY
     Dosage: 20MG PER DAY
     Route: 048
     Dates: end: 20080108
  2. EFFEXOR [Suspect]
     Indication: ANXIETY
     Dosage: 37.5MG PER DAY
     Route: 048
     Dates: start: 20071223, end: 20080107
  3. SINEMET [Concomitant]
     Route: 065
  4. PREVISCAN (FLUINDIONE) [Concomitant]
     Dosage: 5MG PER DAY
     Route: 065
  5. CORDARONE [Concomitant]
     Route: 065

REACTIONS (6)
  - Confusional state [Recovered/Resolved]
  - Delirium [Recovered/Resolved]
  - Fall [Unknown]
  - Abasia [Unknown]
  - Drug withdrawal syndrome [Recovered/Resolved]
  - Drug interaction [Unknown]
